FAERS Safety Report 5376087-9 (Version None)
Quarter: 2007Q3

REPORT INFORMATION
  Report Type: 
  Country: None (occurrence: None)
  Receive Date: 20070702
  Receipt Date: 20070626
  Transmission Date: 20080115
  Serious: Yes (Hospitalization, Congenital Anomaly)
  Sender: FDA-Public Use
  Company Number: A0637254A

PATIENT
  Sex: Female

DRUGS (2)
  1. TRIZIVIR [Suspect]
     Indication: HIV INFECTION
     Dosage: 2TAB PER DAY
     Dates: start: 20060822
  2. AZT [Suspect]
     Indication: HIV INFECTION

REACTIONS (23)
  - ACOUSTIC STIMULATION TESTS ABNORMAL [None]
  - ANASTOMOTIC LEAK [None]
  - APNOEA [None]
  - BRADYCARDIA [None]
  - CHOANAL ATRESIA [None]
  - CONVULSION [None]
  - CYANOSIS [None]
  - DRUG EXPOSURE DURING PREGNANCY [None]
  - ECHOCARDIOGRAM ABNORMAL [None]
  - HIV ANTIBODY POSITIVE [None]
  - INTESTINAL MALROTATION [None]
  - MEDIASTINITIS [None]
  - NASAL CONGESTION [None]
  - NASAL DISORDER [None]
  - OXYGEN SATURATION DECREASED [None]
  - PNEUMOTHORAX [None]
  - PULMONARY MALFORMATION [None]
  - RESPIRATION ABNORMAL [None]
  - SMALL INTESTINAL OBSTRUCTION [None]
  - STAPHYLOCOCCAL INFECTION [None]
  - TRACHEO-OESOPHAGEAL FISTULA [None]
  - VOLVULUS [None]
  - WHITE BLOOD CELL COUNT INCREASED [None]
